FAERS Safety Report 7479665-6 (Version None)
Quarter: 2011Q2

REPORT INFORMATION
  Report Type: 
  Country: None (occurrence: None)
  Receive Date: 20110513
  Receipt Date: 20110504
  Transmission Date: 20111010
  Serious: Yes (Hospitalization)
  Sender: FDA-Public Use
  Company Number: PL-ABBOTT-11P-129-0716291-03

PATIENT
  Sex: Female
  Weight: 49 kg

DRUGS (6)
  1. HUMIRA [Suspect]
     Indication: CROHN'S DISEASE
     Route: 058
     Dates: start: 20090627
  2. METHOTREXATE [Concomitant]
     Indication: CROHN'S DISEASE
     Route: 048
     Dates: start: 20070529
  3. MESALAMINE [Concomitant]
     Indication: CROHN'S DISEASE
     Route: 048
     Dates: start: 20070307
  4. CLEMASTINUM [Concomitant]
     Indication: PROPHYLAXIS
     Route: 048
     Dates: start: 20090608
  5. AC. FOLICUM [Concomitant]
     Indication: PROPHYLAXIS
     Route: 048
     Dates: start: 20070529
  6. FORLAX [Concomitant]
     Indication: CONSTIPATION
     Route: 048
     Dates: start: 20090818

REACTIONS (1)
  - ILEAL STENOSIS [None]
